FAERS Safety Report 15853184 (Version 3)
Quarter: 2019Q3

REPORT INFORMATION
  Report Type: Spontaneous
  Country: US (occurrence: US)
  Receive Date: 20190122
  Receipt Date: 20190731
  Transmission Date: 20191004
  Serious: No
  Sender: FDA-Public Use
  Company Number: US-BIOGEN-2019BI00685959

PATIENT
  Age: 37 Year
  Sex: Female

DRUGS (1)
  1. TYSABRI [Suspect]
     Active Substance: NATALIZUMAB
     Indication: MULTIPLE SCLEROSIS
     Route: 050
     Dates: start: 20171122, end: 20181205

REACTIONS (3)
  - Infusion related reaction [Unknown]
  - Hypersensitivity [Unknown]
  - Mouth swelling [Unknown]

NARRATIVE: CASE EVENT DATE: 201901
